FAERS Safety Report 8518512-8 (Version None)
Quarter: 2012Q3

REPORT INFORMATION
  Report Type: 
  Country: None (occurrence: None)
  Receive Date: 20120718
  Receipt Date: 20120706
  Transmission Date: 20120928
  Serious: Yes (Disabling, Other)
  Sender: FDA-Public Use
  Company Number: JP-BRISTOL-MYERS SQUIBB COMPANY-16755696

PATIENT
  Age: 70 Year
  Sex: Female

DRUGS (2)
  1. METFORMIN HCL [Suspect]
  2. GLICLAZIDE [Suspect]

REACTIONS (1)
  - HYPOGLYCAEMIC ENCEPHALOPATHY [None]
